FAERS Safety Report 19055863 (Version 1)
Quarter: 2021Q1

REPORT INFORMATION
  Report Type: Spontaneous
  Country: DE (occurrence: DE)
  Receive Date: 20210324
  Receipt Date: 20210324
  Transmission Date: 20210420
  Serious: Yes (Death, Other)
  Sender: FDA-Public Use
  Company Number: DE-BRISTOL-MYERS SQUIBB COMPANY-BMS-2021-028242

PATIENT
  Age: 59 Year
  Sex: Male

DRUGS (1)
  1. NIVOLUMAB [Suspect]
     Active Substance: NIVOLUMAB
     Indication: COLORECTAL CANCER
     Dosage: UNK
     Route: 065

REACTIONS (5)
  - Acute respiratory distress syndrome [Unknown]
  - Chest pain [Unknown]
  - Dyspnoea [Unknown]
  - Intentional product use issue [Unknown]
  - Sepsis [Fatal]
